FAERS Safety Report 23234187 (Version 1)
Quarter: 2023Q4

REPORT INFORMATION
  Report Type: Spontaneous
  Country: US (occurrence: US)
  Receive Date: 20231128
  Receipt Date: 20231128
  Transmission Date: 20240110
  Serious: No
  Sender: FDA-Public Use
  Company Number: US-drreddys-SPO/USA/23/0182879

PATIENT
  Age: 47 Year
  Sex: Female

DRUGS (3)
  1. ZENATANE [Suspect]
     Active Substance: ISOTRETINOIN
     Indication: Product used for unknown indication
     Dosage: RMA ISSUE DATE: 21 MARCH 2023 04:50:35 PM, 21 APRIL 2023 05:43:35 PM
  2. ZENATANE [Suspect]
     Active Substance: ISOTRETINOIN
     Dosage: RMA ISSUE DATE: 22 MAY 2023 01:37:58 PM, 22 JUNE 2023 02:41:27 PM
  3. ZENATANE [Suspect]
     Active Substance: ISOTRETINOIN
     Dosage: RMA ISSUE DATE: 24 JULY 2023 06:27:48 PM, 24 AUGUST 2023 03:07:00 PM, 25 SEPTEMBER 2023 05:36:59 PM

REACTIONS (1)
  - Therapy cessation [Unknown]
